FAERS Safety Report 7653814-9 (Version None)
Quarter: 2011Q3

REPORT INFORMATION
  Report Type: 
  Country: None (occurrence: None)
  Receive Date: 20110803
  Receipt Date: 20110726
  Transmission Date: 20111222
  Serious: Yes (Death, Hospitalization)
  Sender: FDA-Public Use
  Company Number: FR-CELGENEUS-056-21880-11052769

PATIENT
  Sex: Female
  Weight: 49 kg

DRUGS (8)
  1. LYTOS [Concomitant]
     Indication: MULTIPLE MYELOMA
     Dosage: 260 MILLIGRAM
     Route: 048
     Dates: end: 20110502
  2. BROMAZEPAM [Concomitant]
     Dosage: 3 MILLIGRAM
     Route: 048
  3. BISOPROLOL FUMARATE [Concomitant]
     Dosage: 20 MILLIGRAM
     Route: 048
  4. BACTRIM [Concomitant]
     Dosage: .8571 DOSAGE FORMS
     Route: 048
     Dates: end: 20110504
  5. PREVISCAN [Concomitant]
     Dosage: 6.4286 MILLIGRAM
     Route: 048
     Dates: end: 20110502
  6. RABEPRAZOLE SODIUM [Concomitant]
     Route: 048
     Dates: end: 20110502
  7. REVLIMID [Suspect]
     Indication: MULTIPLE MYELOMA
     Dosage: 18.75 MILLIGRAM
     Route: 048
     Dates: start: 20110201, end: 20110421
  8. DEXAMETHASONE [Concomitant]
     Indication: MULTIPLE MYELOMA
     Route: 048
     Dates: start: 20110401, end: 20110421

REACTIONS (5)
  - ILEITIS [None]
  - PNEUMOTHORAX [None]
  - COLITIS [None]
  - MULTIPLE MYELOMA [None]
  - DISSEMINATED INTRAVASCULAR COAGULATION [None]
